FAERS Safety Report 9933988 (Version 2)
Quarter: 2014Q1

REPORT INFORMATION
  Report Type: Spontaneous
  Country: US (occurrence: US)
  Receive Date: 20140228
  Receipt Date: 20140228
  Transmission Date: 20141002
  Serious: No
  Sender: FDA-Public Use
  Company Number: US-ABBVIE-14P-163-1187106-00

PATIENT
  Sex: Male
  Weight: 93.07 kg

DRUGS (4)
  1. ANDROGEL [Suspect]
     Indication: BLOOD TESTOSTERONE DECREASED
     Route: 061
     Dates: start: 201310
  2. ANDROGEL [Suspect]
     Route: 061
     Dates: start: 201307, end: 201310
  3. ANDROGEL [Suspect]
     Dosage: UNKNOWN SIZE PACKETS/ 2 PACKETS DAILY
     Route: 061
     Dates: start: 201304, end: 201307
  4. FLUTICASONE NASAL SPRAY [Concomitant]
     Indication: HYPERSENSITIVITY

REACTIONS (2)
  - Blood testosterone decreased [Not Recovered/Not Resolved]
  - Blood testosterone decreased [Recovered/Resolved]
